FAERS Safety Report 17000204 (Version 2)
Quarter: 2020Q4

REPORT INFORMATION
  Report Type: Spontaneous
  Country: RU (occurrence: RU)
  Receive Date: 20191106
  Receipt Date: 20201230
  Transmission Date: 20210113
  Serious: Yes (Death, Life-Threatening, Other)
  Sender: FDA-Public Use
  Company Number: RU-AMGEN-RUSSP2019181732

PATIENT

DRUGS (2)
  1. NPLATE [Suspect]
     Active Substance: ROMIPLOSTIM
     Indication: TRANSPLANT DYSFUNCTION
     Dosage: 5-10 MILLIGRAM
     Route: 065
  2. RITUXIMAB. [Concomitant]
     Active Substance: RITUXIMAB

REACTIONS (5)
  - Off label use [Unknown]
  - Acute graft versus host disease [Fatal]
  - Cytomegalovirus infection reactivation [Unknown]
  - Therapy non-responder [Unknown]
  - Disease recurrence [Fatal]
